FAERS Safety Report 24153563 (Version 1)
Quarter: 2024Q3

REPORT INFORMATION
  Report Type: Spontaneous
  Country: CN (occurrence: CN)
  Receive Date: 20240730
  Receipt Date: 20240730
  Transmission Date: 20241017
  Serious: Yes (Other)
  Sender: RANBAXY
  Company Number: CN-SUN PHARMACEUTICAL INDUSTRIES LTD-2021R1-452922

PATIENT
  Age: 78 Year
  Sex: Male

DRUGS (1)
  1. RIVASTIGMINE [Suspect]
     Active Substance: RIVASTIGMINE
     Indication: Dementia Alzheimer^s type
     Dosage: 3 MILLIGRAM
     Route: 048
     Dates: start: 20210101, end: 20210101

REACTIONS (1)
  - Hallucination [Unknown]

NARRATIVE: CASE EVENT DATE: 20211101
